FAERS Safety Report 7067563-1 (Version None)
Quarter: 2010Q4

REPORT INFORMATION
  Report Type: 
  Country: None (occurrence: None)
  Receive Date: 20101020
  Receipt Date: 20101004
  Transmission Date: 20110411
  Serious: Yes (Life-Threatening, Other)
  Sender: FDA-Public Use
  Company Number: ACO_01598_2010

PATIENT
  Age: 56 Year
  Sex: Female
  Weight: 68.0396 kg

DRUGS (6)
  1. AMPYRA [Suspect]
     Indication: GAIT DISTURBANCE
     Dosage: 10 MG QD ORAL
     Route: 048
     Dates: start: 20100413, end: 20100830
  2. PROVIGIL [Suspect]
     Indication: FATIGUE
     Dosage: 200 MG QD ORAL
     Route: 048
     Dates: start: 20090101
  3. XANAX [Concomitant]
  4. ZOLOFT [Concomitant]
  5. VALTREX [Concomitant]
  6. BACLOFEN [Concomitant]

REACTIONS (7)
  - ANXIETY [None]
  - CONVERSION DISORDER [None]
  - CRYING [None]
  - DRUG INTERACTION [None]
  - FATIGUE [None]
  - STRESS [None]
  - SUICIDAL IDEATION [None]
